FAERS Safety Report 10636212 (Version 10)
Quarter: 2015Q4

REPORT INFORMATION
  Report Type: Spontaneous
  Country: CA (occurrence: CA)
  Receive Date: 20141205
  Receipt Date: 20151008
  Transmission Date: 20160304
  Serious: Yes (Hospitalization, Other)
  Sender: FDA-Public Use
  Company Number: CA-ROCHE-1503471

PATIENT
  Age: 59 Year
  Sex: Male

DRUGS (17)
  1. XOLAIR [Suspect]
     Active Substance: OMALIZUMAB
     Route: 058
     Dates: start: 20150119
  2. PREDNISONE. [Concomitant]
     Active Substance: PREDNISONE
     Route: 065
  3. XOLAIR [Suspect]
     Active Substance: OMALIZUMAB
     Route: 058
     Dates: start: 20141222
  4. XOLAIR [Suspect]
     Active Substance: OMALIZUMAB
     Route: 058
     Dates: start: 20150804
  5. SINGULAIR [Concomitant]
     Active Substance: MONTELUKAST SODIUM
  6. XOLAIR [Suspect]
     Active Substance: OMALIZUMAB
     Route: 058
     Dates: start: 20150216
  7. ALVESCO [Concomitant]
     Active Substance: CICLESONIDE
  8. VENTOLIN [Concomitant]
     Active Substance: ALBUTEROL SULFATE
  9. XOLAIR [Suspect]
     Active Substance: OMALIZUMAB
     Indication: ASTHMA
     Route: 058
     Dates: start: 20141124
  10. XOLAIR [Suspect]
     Active Substance: OMALIZUMAB
     Route: 058
     Dates: start: 20141208
  11. ONBREZ BREEZHALER [Suspect]
     Active Substance: INDACATEROL
     Indication: PRODUCT USED FOR UNKNOWN INDICATION
     Route: 050
     Dates: start: 2013
  12. PRISTIQ EXTENDED RELEASE [Concomitant]
     Active Substance: DESVENLAFAXINE SUCCINATE
  13. PREDNISONE. [Concomitant]
     Active Substance: PREDNISONE
     Route: 065
  14. PREDNISONE. [Concomitant]
     Active Substance: PREDNISONE
     Dosage: INCREASE DOSE THAN 50 MG
     Route: 065
  15. SPIRIVA [Concomitant]
     Active Substance: TIOTROPIUM BROMIDE MONOHYDRATE
  16. XOLAIR [Suspect]
     Active Substance: OMALIZUMAB
     Route: 058
     Dates: start: 20150202
  17. ZENHALE [Concomitant]
     Active Substance: FORMOTEROL FUMARATE\MOMETASONE FUROATE

REACTIONS (20)
  - Blood pressure increased [Not Recovered/Not Resolved]
  - Umbilical hernia [Unknown]
  - Hypoaesthesia [Unknown]
  - Pharyngeal disorder [Unknown]
  - Umbilical discharge [Unknown]
  - Oropharyngeal pain [Recovered/Resolved]
  - Vocal cord polyp [Unknown]
  - Asthma [Unknown]
  - Lung disorder [Unknown]
  - Sneezing [Recovered/Resolved]
  - Rhinorrhoea [Recovered/Resolved]
  - Pain [Unknown]
  - Wheezing [Unknown]
  - Headache [Unknown]
  - Peak expiratory flow rate decreased [Unknown]
  - Dysphonia [Unknown]
  - Pain in extremity [Unknown]
  - Dyspnoea [Unknown]
  - Nasopharyngitis [Unknown]
  - Influenza [Unknown]

NARRATIVE: CASE EVENT DATE: 20141125
